FAERS Safety Report 7375517-0 (Version None)
Quarter: 2011Q1

REPORT INFORMATION
  Report Type: 
  Country: None (occurrence: None)
  Receive Date: 20110325
  Receipt Date: 20110311
  Transmission Date: 20110831
  Serious: Yes (Hospitalization, Disabling)
  Sender: FDA-Public Use
  Company Number: IT-JNJFOC-20110307567

PATIENT
  Age: 78 Year
  Sex: Male

DRUGS (8)
  1. SAQUINAVIR [Concomitant]
     Indication: HIV INFECTION
  2. EFAVIRENZ [Concomitant]
     Indication: HIV INFECTION
  3. RITONAVIR [Concomitant]
     Indication: HIV INFECTION
  4. TENOFOVIR DISOPROXIL FUMARATE [Concomitant]
     Indication: HIV INFECTION
  5. RALTEGRAVIR [Concomitant]
     Indication: HIV INFECTION
  6. DARUNAVIR [Suspect]
     Indication: HIV INFECTION
     Route: 065
  7. FOSAMPRENAVIR [Concomitant]
     Indication: HIV INFECTION
  8. ATAZANAVIR [Concomitant]
     Indication: HIV INFECTION

REACTIONS (1)
  - POLYMYOSITIS [None]
